FAERS Safety Report 6068280-7 (Version None)
Quarter: 2009Q1

REPORT INFORMATION
  Report Type: 
  Country: None (occurrence: None)
  Receive Date: 20090206
  Receipt Date: 20090129
  Transmission Date: 20090719
  Serious: Yes (Other)
  Sender: FDA-Public Use
  Company Number: US-ABBOTT-09P-163-0500414-00

PATIENT
  Age: 28 Year
  Sex: Male

DRUGS (4)
  1. VALPROATE SODIUM [Suspect]
     Indication: SCHIZOPHRENIA
  2. RISPERIDONE [Suspect]
     Indication: SCHIZOPHRENIA
  3. CLOZAPINE [Suspect]
     Indication: SCHIZOPHRENIA
     Dosage: INCREASED TO 400MG/DAY OVER 15 DAYS
  4. ARIPIPRAZOLE [Suspect]
     Indication: SCHIZOPHRENIA

REACTIONS (5)
  - MYOCARDIAL INFARCTION [None]
  - NEUROLEPTIC MALIGNANT SYNDROME [None]
  - PULMONARY EMBOLISM [None]
  - PULMONARY OEDEMA [None]
  - RHABDOMYOLYSIS [None]
